FAERS Safety Report 25461586 (Version 1)
Quarter: 2025Q2

REPORT INFORMATION
  Report Type: Spontaneous
  Country: US (occurrence: None)
  Receive Date: 20250618
  Receipt Date: 20250618
  Transmission Date: 20250716
  Serious: Yes (Hospitalization, Disabling)
  Sender: FDA-CTU
  Company Number: None

PATIENT
  Age: 72 Year
  Sex: Female
  Weight: 50.8 kg

DRUGS (21)
  1. PROLIA [Suspect]
     Active Substance: DENOSUMAB
     Indication: Osteoporosis
     Dates: start: 20230119, end: 20240327
  2. MAG 64 DR [Concomitant]
  3. TRIAMTERINE/HCTZ [Concomitant]
  4. SERTRALINE [Concomitant]
     Active Substance: SERTRALINE HYDROCHLORIDE
  5. FAMOTIDINE [Concomitant]
     Active Substance: FAMOTIDINE
  6. LOTONAPROST DROPS [Concomitant]
  7. E3/E2 CREAM [Concomitant]
  8. DOXEPIN HCL LIDOCAINE [Concomitant]
  9. MOMETASONE [Concomitant]
     Active Substance: MOMETASONE
  10. DIFLUCAN FOR YEAST [Concomitant]
  11. VAGIFEM TABS [Concomitant]
  12. DIAZEPAM [Concomitant]
     Active Substance: DIAZEPAM
  13. METRONIDAZOLE VAG GEL [Concomitant]
  14. D3 100 IV [Concomitant]
  15. MINERALS\VITAMINS [Concomitant]
     Active Substance: MINERALS\VITAMINS
  16. CALTRATE [Concomitant]
     Active Substance: CALCIUM CARBONATE
  17. BIOTE VH BALANCE [Concomitant]
  18. GAS-X [Concomitant]
     Active Substance: DIMETHICONE
  19. IMODIUM [Concomitant]
     Active Substance: LOPERAMIDE HYDROCHLORIDE
  20. PEPTO-BISMOL [Concomitant]
     Active Substance: BISMUTH SUBSALICYLATE
  21. TYLENOL [Concomitant]
     Active Substance: ACETAMINOPHEN

REACTIONS (8)
  - Vulvovaginal discomfort [None]
  - Vulvovaginal burning sensation [None]
  - Vulvovaginal pruritus [None]
  - Vulvovaginal dryness [None]
  - Anorectal discomfort [None]
  - Bacterial infection [None]
  - Drug hypersensitivity [None]
  - Neurodermatitis [None]

NARRATIVE: CASE EVENT DATE: 20231111
